FAERS Safety Report 26180554 (Version 1)
Quarter: 2025Q4

REPORT INFORMATION
  Report Type: Spontaneous
  Country: EU (occurrence: EU)
  Receive Date: 20251219
  Receipt Date: 20251219
  Transmission Date: 20260117
  Serious: Yes (Death, Other)
  Sender: B. BRAUN MEDICAL INC.
  Company Number: None

PATIENT
  Sex: Male

DRUGS (1)
  1. MIDAZOLAM HYDROCHLORIDE [Suspect]
     Active Substance: MIDAZOLAM HYDROCHLORIDE
     Indication: Magnetic resonance imaging head
     Route: 042
     Dates: start: 20251015, end: 20251015

REACTIONS (2)
  - Depressed level of consciousness [Fatal]
  - Incorrect route of product administration [Fatal]

NARRATIVE: CASE EVENT DATE: 20251015
